FAERS Safety Report 7279318-3 (Version None)
Quarter: 2011Q1

REPORT INFORMATION
  Report Type: 
  Country: None (occurrence: None)
  Receive Date: 20110207
  Receipt Date: 20110125
  Transmission Date: 20110831
  Serious: No
  Sender: FDA-Public Use
  Company Number: JP-MERCK-0909USA02311

PATIENT
  Age: 34 Year
  Sex: Female

DRUGS (2)
  1. DECADRON PHOSPHATE [Suspect]
     Indication: GENITAL HAEMORRHAGE
     Route: 042
  2. DECADRON PHOSPHATE [Suspect]
     Indication: UTERINE CONTRACTIONS ABNORMAL
     Route: 042

REACTIONS (1)
  - DRUG EXPOSURE DURING PREGNANCY [None]
